FAERS Safety Report 5689728-3 (Version None)
Quarter: 2008Q1

REPORT INFORMATION
  Report Type: 
  Country: None (occurrence: None)
  Receive Date: 20080328
  Receipt Date: 20080318
  Transmission Date: 20080703
  Serious: Yes (Life-Threatening, Hospitalization, Other)
  Sender: FDA-Public Use
  Company Number: 2008-00928

PATIENT
  Age: 65 Year
  Sex: Female

DRUGS (18)
  1. VELCADE [Suspect]
     Indication: MANTLE CELL LYMPHOMA
     Dosage: 1.30 MG/M2,  IV BOLUS
     Route: 040
     Dates: start: 20071109, end: 20080303
  2. ETOPOSIDE [Suspect]
     Indication: MANTLE CELL LYMPHOMA
     Dosage: 102.00 MG,  INTRAVENOUS
     Route: 042
     Dates: start: 20071109, end: 20080303
  3. PREDNISONE TAB [Suspect]
     Indication: MANTLE CELL LYMPHOMA
     Dosage: 80.00 MG,  ORAL
     Route: 048
     Dates: start: 20071109, end: 20080229
  4. VINCRISTINE [Suspect]
     Indication: MANTLE CELL LYMPHOMA
     Dosage: 0.57 MG,   INTRAVENOUS
     Route: 042
     Dates: start: 20071109, end: 20080303
  5. CYCLOPHOSPHAMIDE [Suspect]
     Indication: MANTLE CELL LYMPHOMA
     Dosage: 1530 MG,  INTRAVENOUS
     Route: 042
     Dates: start: 20071109, end: 20080304
  6. DOXORUBICIN HCL [Suspect]
     Dosage: 20.40 MG,   INTRAVENOUS
     Route: 042
     Dates: start: 20071109, end: 20080303
  7. RITUXIMAB(RITUXIMAB) INJECTION [Suspect]
     Indication: MANTLE CELL LYMPHOMA
     Dosage: 533 MG,  INTRAVENOUS
     Route: 042
     Dates: start: 20071109, end: 20080229
  8. FILGRASTIM [Concomitant]
  9. OMEPRAZOLE [Concomitant]
  10. BACTRIM DS [Concomitant]
  11. NYSTATIN [Concomitant]
  12. GALENIC /DOCUSATE/SENNA (SENNA, DOCUSATE) [Concomitant]
  13. MEDORAL [Concomitant]
  14. ZOLPIDEM [Concomitant]
  15. LIDOBENALOX [Concomitant]
  16. ONDANSETRON HCL [Concomitant]
  17. DIPHENHYDRAMINE HCL [Concomitant]
  18. ACETAMINOPHEN [Concomitant]

REACTIONS (9)
  - DYSPNOEA [None]
  - FEBRILE NEUTROPENIA [None]
  - HAEMORRHAGE [None]
  - HEADACHE [None]
  - INFECTION [None]
  - LETHARGY [None]
  - LOBAR PNEUMONIA [None]
  - PHOTOPHOBIA [None]
  - SUBARACHNOID HAEMORRHAGE [None]
